FAERS Safety Report 6147543-0 (Version None)
Quarter: 2009Q2

REPORT INFORMATION
  Report Type: 
  Country: None (occurrence: None)
  Receive Date: 20090408
  Receipt Date: 20090309
  Transmission Date: 20091009
  Serious: No
  Sender: FDA-Public Use
  Company Number: US-BAYER-200910799BCC

PATIENT
  Age: 73 Year
  Sex: Female
  Weight: 91 kg

DRUGS (5)
  1. ALEVE (CAPLET) [Suspect]
     Indication: ARTHRITIS
     Dosage: UNIT DOSE: 220 MG
  2. ALEVE (CAPLET) [Suspect]
     Dosage: UNIT DOSE: 220 MG
  3. LIPITOR [Concomitant]
  4. GENERIC 81 MG ASPIRIN [Concomitant]
  5. LEVOTHYROXINE [Concomitant]

REACTIONS (1)
  - ARTHRITIS [None]
